FAERS Safety Report 9304929 (Version 1)
Quarter: 2013Q2

REPORT INFORMATION
  Report Type: Spontaneous
  Country: CN (occurrence: CN)
  Receive Date: 20130523
  Receipt Date: 20130523
  Transmission Date: 20140414
  Serious: Yes (Other)
  Sender: FDA-Public Use
  Company Number: CN-JNJFOC-20130508709

PATIENT
  Sex: 0

DRUGS (2)
  1. SPORANOX [Suspect]
     Indication: FUNGAL INFECTION
     Route: 048
  2. AMPHOTERICIN B [Suspect]
     Indication: FUNGAL INFECTION
     Route: 042

REACTIONS (4)
  - Bone marrow failure [Unknown]
  - Renal impairment [Unknown]
  - Toxicity to various agents [Unknown]
  - Fungal infection [Unknown]
